FAERS Safety Report 6960693-1 (Version None)
Quarter: 2010Q3

REPORT INFORMATION
  Report Type: 
  Country: None (occurrence: None)
  Receive Date: 20100901
  Receipt Date: 20100825
  Transmission Date: 20110219
  Serious: Yes (Hospitalization, Other)
  Sender: FDA-Public Use
  Company Number: RU-ROCHE-700338

PATIENT
  Sex: Female
  Weight: 75 kg

DRUGS (2)
  1. PEGINTERFERON ALFA-2A [Suspect]
     Dosage: LAST DOSE PRIOR TO SAE: 17 APRIL 2010.  THERAPY TEMPORARILY INTERRUPTED.
     Route: 058
     Dates: start: 20100227, end: 20100418
  2. RIBAVIRIN [Suspect]
     Dosage: LAST DOSE PRIOR TO SAE: 17 APRIL 2010.  FREQUENCY: DAILY. THERAPY TEMPORARILY INTERRUPTED.
     Route: 048
     Dates: start: 20100227, end: 20100418

REACTIONS (2)
  - METRORRHAGIA [None]
  - PLATELET COUNT DECREASED [None]
